FAERS Safety Report 23947683 (Version 1)
Quarter: 2024Q2

REPORT INFORMATION
  Report Type: Spontaneous
  Country: RU (occurrence: RU)
  Receive Date: 20240606
  Receipt Date: 20240606
  Transmission Date: 20240715
  Serious: Yes (Hospitalization, Other)
  Sender: FDA-Public Use
  Company Number: RU-IMP-2024000316

PATIENT
  Age: 22 Year

DRUGS (6)
  1. DEXAMETHASONE [Suspect]
     Active Substance: DEXAMETHASONE
     Indication: Xerosis
     Dosage: QID
     Route: 065
  2. CEFTRIAXONE [Suspect]
     Active Substance: CEFTRIAXONE\CEFTRIAXONE SODIUM
     Indication: Xerosis
     Route: 057
  3. DEXAMETHASONE [Suspect]
     Active Substance: DEXAMETHASONE
     Indication: Xerosis
     Dosage: 0.002 G, QD
     Route: 057
  4. DEXAMETHASONE [Suspect]
     Active Substance: DEXAMETHASONE
     Indication: Xerosis
     Dosage: UNK (STARTING DOSE 16 MG PER DAY WITH SUBSEQUENT REDUCTION BY 4 MG EVERY 2 DAYS)
     Route: 042
  5. HYALURONATE SODIUM [Suspect]
     Active Substance: HYALURONATE SODIUM
     Indication: Xerosis
     Route: 057
  6. RETINOL [Suspect]
     Active Substance: RETINOL
     Indication: Xerosis
     Dosage: 250 IU, QD (AT NIGHT)
     Route: 065

REACTIONS (2)
  - Corneal perforation [Unknown]
  - Therapy non-responder [Unknown]
